FAERS Safety Report 18062758 (Version 1)
Quarter: 2020Q3

REPORT INFORMATION
  Report Type: Spontaneous
  Country: ES (occurrence: ES)
  Receive Date: 20200723
  Receipt Date: 20200723
  Transmission Date: 20201103
  Serious: Yes (Death, Other)
  Sender: FDA-Public Use
  Company Number: ES-ALLERGAN-2027438US

PATIENT
  Sex: Male

DRUGS (14)
  1. EDOXABAN [Concomitant]
     Active Substance: EDOXABAN TOSYLATE
     Dosage: UNK
  2. FUROSEMIDE. [Concomitant]
     Active Substance: FUROSEMIDE
     Dosage: UNK
  3. GABAPENTIN. [Concomitant]
     Active Substance: GABAPENTIN
     Dosage: UNK
  4. MORPHINE [Concomitant]
     Active Substance: MORPHINE
     Dosage: UNK
  5. TRAMADOL. [Concomitant]
     Active Substance: TRAMADOL
     Dosage: UNK
  6. DAPTOMYCIN. [Suspect]
     Active Substance: DAPTOMYCIN
     Indication: STAPHYLOCOCCAL INFECTION
     Dosage: 10 MG/KG AT AN UNKNOWN FREQUENCY
     Route: 065
     Dates: start: 20191022, end: 20191118
  7. FENTANYL. [Concomitant]
     Active Substance: FENTANYL
     Dosage: UNK
  8. PREDNISONE. [Concomitant]
     Active Substance: PREDNISONE
     Dosage: UNK
  9. PARACETAMOL [Concomitant]
     Active Substance: ACETAMINOPHEN
     Dosage: UNK
  10. ONDANSETRON [Concomitant]
     Active Substance: ONDANSETRON
     Dosage: UNK
  11. METAMIZOLE [Concomitant]
     Active Substance: METAMIZOLE
     Dosage: UNK
  12. CEFTAROLINE FOSAMIL ? BP [Suspect]
     Active Substance: CEFTAROLINE FOSAMIL
     Indication: STAPHYLOCOCCAL INFECTION
     Dosage: 600 MG, Q8HR
     Route: 065
     Dates: start: 20191022, end: 20191102
  13. DULOXETINE. [Concomitant]
     Active Substance: DULOXETINE
     Dosage: UNK
  14. INSULIN [Concomitant]
     Active Substance: INSULIN NOS
     Dosage: UNK

REACTIONS (3)
  - Bacteraemia [Recovered/Resolved]
  - Death [Fatal]
  - Thrombocytopenia [Recovered/Resolved]

NARRATIVE: CASE EVENT DATE: 201910
